FAERS Safety Report 11370853 (Version 5)
Quarter: 2015Q4

REPORT INFORMATION
  Report Type: Spontaneous
  Country: US (occurrence: US)
  Receive Date: 20150812
  Receipt Date: 20151019
  Transmission Date: 20160304
  Serious: Yes (Hospitalization)
  Sender: FDA-Public Use
  Company Number: US-PFIZER INC-2015268210

PATIENT
  Age: 60 Year
  Sex: Female

DRUGS (15)
  1. TECFIDERA [Interacting]
     Active Substance: DIMETHYL FUMARATE
     Dosage: 240 MG, 2X/DAY
     Route: 048
     Dates: end: 201501
  2. ASPIRIN /00002701/ [Concomitant]
     Active Substance: ASPIRIN
     Dosage: 81 MG, 1X/DAY
     Route: 048
  3. VENLAFAXINE HYDROCHLORIDE. [Concomitant]
     Active Substance: VENLAFAXINE HYDROCHLORIDE
     Dosage: 75 MG, DAILY
     Dates: start: 20100426
  4. CELEBREX [Suspect]
     Active Substance: CELECOXIB
     Indication: ASTHENIA
     Dosage: UNK, 1X/DAY
     Dates: end: 20150102
  5. TECFIDERA [Interacting]
     Active Substance: DIMETHYL FUMARATE
     Dosage: UNK
     Dates: start: 20131124, end: 20150806
  6. LEVOTHYROXINE. [Concomitant]
     Active Substance: LEVOTHYROXINE
     Dosage: 25 ?G, 1X/DAY
     Route: 048
  7. AUBAGIO [Concomitant]
     Active Substance: TERIFLUNOMIDE
     Dosage: UNK
     Dates: start: 20150814
  8. CELEBREX [Interacting]
     Active Substance: CELECOXIB
     Indication: ARTHRITIS
     Dosage: 200 MG, DAILY
     Route: 048
     Dates: end: 201501
  9. TECFIDERA [Interacting]
     Active Substance: DIMETHYL FUMARATE
     Indication: MULTIPLE SCLEROSIS
     Dosage: UNK, 2X/DAY
  10. ALLOPURINOL. [Concomitant]
     Active Substance: ALLOPURINOL
     Dosage: 100 MG, 1X/DAY
     Route: 048
  11. CALCIUM 600 WITH VITAMIN D [Concomitant]
     Dosage: 600 MG, 1X/DAY
  12. ACIDOPHILUS [Concomitant]
     Active Substance: LACTOBACILLUS ACIDOPHILUS
     Dosage: 1 DF, 2X/DAY
  13. COLACE [Concomitant]
     Active Substance: DOCUSATE SODIUM
     Dosage: 100 MG, 1X/DAY
  14. TYLENOL [Concomitant]
     Active Substance: ACETAMINOPHEN
     Dosage: 325 MG, 2 TABS  PRN
     Route: 048
  15. VITAMIN D3 [Concomitant]
     Active Substance: CHOLECALCIFEROL
     Dosage: 5000 IU, DAILY

REACTIONS (6)
  - Gastric ulcer perforation [Recovered/Resolved]
  - Coma [Recovered/Resolved]
  - Off label use [Recovered/Resolved]
  - Abdominal pain upper [Recovered/Resolved]
  - Drug interaction [Recovered/Resolved]
  - Respiratory failure [Recovered/Resolved]

NARRATIVE: CASE EVENT DATE: 20150102
